FAERS Safety Report 15947981 (Version 1)
Quarter: 2019Q1

REPORT INFORMATION
  Report Type: Spontaneous
  Country: US (occurrence: US)
  Receive Date: 20190122
  Receipt Date: 20190122
  Transmission Date: 20190417
  Serious: No
  Sender: FDA-Public Use
  Company Number: None

PATIENT
  Age: 71 Year
  Sex: Male
  Weight: 57.61 kg

DRUGS (1)
  1. FIRMAGON [Suspect]
     Active Substance: DEGARELIX ACETATE
     Indication: PROSTATE CANCER
     Dosage: INJECT 80MG SUBCUTANEOUSLY EVERY 4 WEEKS AS DIRECTED
     Route: 058
     Dates: start: 201802

REACTIONS (2)
  - Abdominal pain upper [None]
  - Hypertension [None]
